FAERS Safety Report 23791263 (Version 1)
Quarter: 2024Q2

REPORT INFORMATION
  Report Type: Spontaneous
  Country: DE (occurrence: DE)
  Receive Date: 20240428
  Receipt Date: 20240428
  Transmission Date: 20240716
  Serious: Yes (Other)
  Sender: FDA-Public Use
  Company Number: DE-BAUSCHBL-2024BNL025747

PATIENT
  Age: 68 Year
  Sex: Male

DRUGS (1)
  1. TIMOPTIC [Suspect]
     Active Substance: TIMOLOL MALEATE
     Indication: Product used for unknown indication
     Route: 065

REACTIONS (8)
  - Lupus vulgaris [Recovered/Resolved]
  - Atrial fibrillation [Unknown]
  - Hypertension [Unknown]
  - Glutathione s-transferase abnormal [Unknown]
  - Adverse reaction [Unknown]
  - Enzyme inhibition [Unknown]
  - Drug intolerance [Unknown]
  - Eye pain [Unknown]
